FAERS Safety Report 10206678 (Version 2)
Quarter: 2014Q2

REPORT INFORMATION
  Report Type: Spontaneous
  Country: JP (occurrence: JP)
  Receive Date: 20140530
  Receipt Date: 20140619
  Transmission Date: 20141212
  Serious: Yes (Other)
  Sender: FDA-Public Use
  Company Number: JP-PFIZER INC-2014145269

PATIENT
  Age: 75 Year
  Sex: Female
  Weight: 54.7 kg

DRUGS (5)
  1. XALKORI [Suspect]
     Indication: LUNG NEOPLASM MALIGNANT
     Dosage: 250 MG, 2X/DAY
     Route: 048
     Dates: start: 20140219, end: 20140304
  2. XALKORI [Suspect]
     Dosage: 200 MG, 2X/DAY
     Route: 048
     Dates: start: 20140311, end: 20140320
  3. XALKORI [Suspect]
     Dosage: 200 MG, 1X/DAY
     Route: 048
     Dates: start: 20140326, end: 20140428
  4. LIPITOR [Concomitant]
  5. METHYCOBAL [Concomitant]

REACTIONS (3)
  - Renal disorder [Recovered/Resolved]
  - Blood creatinine increased [Recovered/Resolved]
  - Vomiting [Recovered/Resolved]
